FAERS Safety Report 6903371-7 (Version None)
Quarter: 2010Q3

REPORT INFORMATION
  Report Type: 
  Country: None (occurrence: None)
  Receive Date: 20100803
  Receipt Date: 20080923
  Transmission Date: 20110219
  Serious: No
  Sender: FDA-Public Use
  Company Number: US-PFIZER INC-2008082339

PATIENT
  Sex: Female
  Weight: 83.91 kg

DRUGS (11)
  1. LYRICA [Suspect]
     Indication: DIABETIC NEUROPATHY
     Dates: start: 20080101, end: 20080101
  2. GLIPIZIDE [Concomitant]
  3. GLUCOPHAGE [Concomitant]
  4. HYDROCHLOROTHIAZIDE [Concomitant]
  5. LIPITOR [Concomitant]
  6. OGEN [Concomitant]
  7. TRIAMTERENE [Concomitant]
  8. LISINOPRIL [Concomitant]
  9. MILK THISTLE [Concomitant]
  10. SUPER VITAMIN B COMPLEX [Concomitant]
  11. CENTRUM SILVER [Concomitant]

REACTIONS (3)
  - DIZZINESS [None]
  - FEELING DRUNK [None]
  - MYALGIA [None]
